FAERS Safety Report 8015633-3 (Version None)
Quarter: 2011Q4

REPORT INFORMATION
  Report Type: 
  Country: None (occurrence: None)
  Receive Date: 20111230
  Receipt Date: 20111222
  Transmission Date: 20120403
  Serious: Yes (Hospitalization)
  Sender: FDA-Public Use
  Company Number: FR-MPIJNJ-2011-06612

PATIENT

DRUGS (7)
  1. VELCADE [Suspect]
     Indication: NEOPLASM MALIGNANT
     Dosage: 1 MG, CYCLIC
     Route: 058
     Dates: start: 20111128, end: 20111216
  2. TOPALGIC                           /00599202/ [Concomitant]
  3. ZANTAC [Concomitant]
  4. DAFALGAN                           /00020001/ [Concomitant]
  5. MOVICOL                            /01053601/ [Concomitant]
  6. LYRICA [Concomitant]
  7. DOMPERIDONE [Concomitant]

REACTIONS (1)
  - TACHYCARDIA [None]
